FAERS Safety Report 8211386-4 (Version None)
Quarter: 2012Q1

REPORT INFORMATION
  Report Type: 
  Country: None (occurrence: None)
  Receive Date: 20120315
  Receipt Date: 20120309
  Transmission Date: 20120608
  Serious: Yes (Disabling, Other)
  Sender: FDA-Public Use
  Company Number: US-PFIZER INC-2012064598

PATIENT

DRUGS (5)
  1. EFFEXOR [Concomitant]
     Dosage: UNK
  2. PROVIGIL [Concomitant]
     Dosage: UNK
  3. SUMATRIPTAN SUCCINATE AND NAPROXEN SODIUM [Concomitant]
  4. EFFEXOR XR [Suspect]
     Dosage: 150 MG, 1X/DAY
  5. FINGOLIMOD [Concomitant]

REACTIONS (1)
  - MULTIPLE SCLEROSIS [None]
